FAERS Safety Report 26174536 (Version 1)
Quarter: 2025Q4

REPORT INFORMATION
  Report Type: Spontaneous
  Country: US (occurrence: None)
  Receive Date: 20251217
  Receipt Date: 20251217
  Transmission Date: 20260117
  Serious: Yes (Hospitalization)
  Sender: FDA-CTU
  Company Number: None

PATIENT
  Age: 71 Year
  Sex: Male

DRUGS (2)
  1. TAVNEOS [Suspect]
     Active Substance: AVACOPAN
     Indication: Diffuse large B-cell lymphoma refractory
     Dosage: 10 MG TWICE A DAY ORAL
     Route: 048
     Dates: start: 20250926
  2. TAVNEOS [Concomitant]
     Active Substance: AVACOPAN
     Dates: start: 20250926

REACTIONS (1)
  - Cerebrovascular accident [None]

NARRATIVE: CASE EVENT DATE: 20251217
